FAERS Safety Report 15290267 (Version 1)
Quarter: 2018Q3

REPORT INFORMATION
  Report Type: Spontaneous
  Country: US (occurrence: US)
  Receive Date: 20180804
  Receipt Date: 20180804
  Transmission Date: 20181010
  Serious: Yes (Life-Threatening, Disabling)
  Sender: FDA-Public Use
  Company Number: None

PATIENT
  Age: 74 Year
  Sex: Female
  Weight: 56.7 kg

DRUGS (4)
  1. XANAX [Suspect]
     Active Substance: ALPRAZOLAM
     Indication: POST-TRAUMATIC STRESS DISORDER
     Dosage: ?          QUANTITY:4 TABLET(S);?
     Route: 048
     Dates: start: 20151026
  2. PLAQUENIL [Concomitant]
     Active Substance: HYDROXYCHLOROQUINE SULFATE
  3. PILOCARPINE HYROXYZ PAM [Concomitant]
  4. LOW DOSE ASPRIN [Concomitant]
     Active Substance: ASPIRIN

REACTIONS (11)
  - Dysstasia [None]
  - Incoherent [None]
  - Weight decreased [None]
  - Insomnia [None]
  - Drug ineffective [None]
  - Anxiety [None]
  - Suicidal ideation [None]
  - Withdrawal syndrome [None]
  - Aggression [None]
  - Fall [None]
  - Eating disorder [None]

NARRATIVE: CASE EVENT DATE: 20180709
